FAERS Safety Report 8351240 (Version 34)
Quarter: 2022Q1

REPORT INFORMATION
  Report Type: Report from Study
  Country: CA (occurrence: CA)
  Receive Date: 20120124
  Receipt Date: 20220208
  Transmission Date: 20220423
  Serious: Yes (Other)
  Sender: FDA-Public Use
  Company Number: PHHY2009CA24453

PATIENT
  Age: 72 Year
  Sex: Female

DRUGS (24)
  1. SANDOSTATIN LAR DEPOT [Suspect]
     Active Substance: OCTREOTIDE ACETATE
     Indication: Neuroendocrine tumour
     Dosage: 20 MG, QMO
     Route: 030
     Dates: start: 20080912
  2. SANDOSTATIN LAR DEPOT [Suspect]
     Active Substance: OCTREOTIDE ACETATE
     Dosage: 30 MG, Q4W
     Route: 030
     Dates: start: 20080912
  3. SANDOSTATIN LAR DEPOT [Suspect]
     Active Substance: OCTREOTIDE ACETATE
     Dosage: 30 MG, QMO (EVERY 4 WEEKS
     Route: 030
  4. SANDOSTATIN LAR DEPOT [Suspect]
     Active Substance: OCTREOTIDE ACETATE
     Dosage: 30 MG, QMO (EVERY 4 WEEKS)
     Route: 030
  5. SANDOSTATIN LAR DEPOT [Suspect]
     Active Substance: OCTREOTIDE ACETATE
     Dosage: 30 MG, QMO (EVERY 4 WEEKS)
     Route: 030
  6. SANDOSTATIN LAR DEPOT [Suspect]
     Active Substance: OCTREOTIDE ACETATE
     Dosage: UNK UNK, TID
     Route: 065
  7. QUETIAPINE [Concomitant]
     Active Substance: QUETIAPINE
     Indication: Product used for unknown indication
     Dosage: 25 MG, BID AT BEDTIME (THE OTHER DOSE IN THE MORNING)
     Route: 065
  8. QUETIAPINE [Concomitant]
     Active Substance: QUETIAPINE
     Dosage: 12.5 MG, BID
     Route: 048
  9. CARDIZEM [Concomitant]
     Active Substance: DILTIAZEM HYDROCHLORIDE
     Indication: Product used for unknown indication
     Dosage: UNK
     Route: 065
  10. JAMP ATORVASTATIN [Concomitant]
     Indication: Product used for unknown indication
     Dosage: UNK, QD (ONCE DAILY AT BEDTIME)
     Route: 048
  11. SYNTHROID [Concomitant]
     Active Substance: LEVOTHYROXINE SODIUM
     Indication: Thyroid disorder
     Dosage: UNK, QD (ONCE DAILY AT BREAKFAST)
     Route: 048
  12. DEXILANT [Concomitant]
     Active Substance: DEXLANSOPRAZOLE
     Indication: Product used for unknown indication
     Dosage: 60 MG, QD (ONCE DAILY AT BREAKFAST)
     Route: 048
  13. CREON [Concomitant]
     Active Substance: PANCRELIPASE AMYLASE\PANCRELIPASE LIPASE\PANCRELIPASE PROTEASE
     Indication: Product used for unknown indication
     Dosage: 2 DF, QID
     Route: 048
  14. JAMP VITAMIN B1 [Concomitant]
     Indication: Vitamin supplementation
     Dosage: UNK, QD (DAILY AT BREAKFAST)
     Route: 048
  15. PRO-AAS [Concomitant]
     Indication: Product used for unknown indication
     Dosage: 1 DF, QD
     Route: 048
  16. PRO-QUETIAPINE [Concomitant]
     Indication: Product used for unknown indication
     Dosage: 1 DF, BID
     Route: 048
  17. PMS-OXYBUTYNIN [Concomitant]
     Indication: Product used for unknown indication
     Dosage: 1 DF, BID
     Route: 048
  18. SERTRALINE [Concomitant]
     Active Substance: SERTRALINE HYDROCHLORIDE
     Indication: Product used for unknown indication
     Dosage: 1 DF, QD
     Route: 048
  19. AMLODIPINE MALEATE [Concomitant]
     Active Substance: AMLODIPINE MALEATE
     Indication: Blood pressure measurement
     Dosage: 1 DF (ONCE AT BREAKFAST), QD
     Route: 048
  20. EZETIMIBE [Concomitant]
     Active Substance: EZETIMIBE
     Indication: Product used for unknown indication
     Dosage: 1 DF, QD
     Route: 048
  21. IRBESARTAN [Concomitant]
     Active Substance: IRBESARTAN
     Indication: Product used for unknown indication
     Dosage: UNK
     Route: 048
  22. TYLENOL [Concomitant]
     Active Substance: ACETAMINOPHEN
     Indication: Product used for unknown indication
     Dosage: 500 MG
     Route: 048
  23. DONEPEZIL [Concomitant]
     Active Substance: DONEPEZIL
     Indication: Product used for unknown indication
     Dosage: UNK
     Route: 048
  24. SANDOSTATIN [Concomitant]
     Active Substance: OCTREOTIDE ACETATE
     Indication: Neuroendocrine tumour
     Dosage: UNK UNK, TID
     Route: 058

REACTIONS (34)
  - Blood pressure increased [Not Recovered/Not Resolved]
  - Blood pressure decreased [Unknown]
  - Pneumonia [Unknown]
  - Asthenia [Unknown]
  - Cough [Unknown]
  - Heart rate decreased [Unknown]
  - Influenza [Unknown]
  - Pyrexia [Unknown]
  - Pain [Unknown]
  - Acne [Unknown]
  - Weight decreased [Unknown]
  - Back pain [Unknown]
  - Oropharyngeal pain [Unknown]
  - Cognitive disorder [Unknown]
  - Burning sensation [Unknown]
  - Insomnia [Unknown]
  - Nasopharyngitis [Unknown]
  - Renal pain [Unknown]
  - Flushing [Unknown]
  - Palpitations [Unknown]
  - Heart rate irregular [Unknown]
  - Dizziness postural [Unknown]
  - Eating disorder [Unknown]
  - Neck pain [Unknown]
  - Nasal congestion [Unknown]
  - Anxiety [Unknown]
  - Productive cough [Unknown]
  - Nervousness [Unknown]
  - Dyspnoea [Unknown]
  - Fatigue [Unknown]
  - Diarrhoea [Unknown]
  - Needle issue [Unknown]
  - Device defective [Unknown]
  - COVID-19 [Unknown]

NARRATIVE: CASE EVENT DATE: 20140324
